FAERS Safety Report 4754315-8 (Version None)
Quarter: 2005Q3

REPORT INFORMATION
  Report Type: 
  Country: None (occurrence: None)
  Receive Date: 20050829
  Receipt Date: 20050822
  Transmission Date: 20060218
  Serious: Yes (Hospitalization)
  Sender: FDA-Public Use
  Company Number: US-BRISTOL-MYERS SQUIBB COMPANY-13085782

PATIENT
  Age: 78 Year
  Sex: Female
  Weight: 55 kg

DRUGS (7)
  1. SINEMET [Suspect]
     Indication: PARKINSON'S DISEASE
     Dates: start: 20050701
  2. AMIODARONE HCL [Concomitant]
  3. ZETIA [Concomitant]
     Dosage: DURATION OF THERAPY:  ONE OR TWO YEARS
  4. LIPITOR [Concomitant]
  5. ASPIRIN [Concomitant]
     Dosage: DURATION OF THERAPY:  SEVERAL YEARS
  6. AVALIDE [Concomitant]
  7. FOSAMAX [Concomitant]

REACTIONS (1)
  - ATRIAL FIBRILLATION [None]
